FAERS Safety Report 14997104 (Version 1)
Quarter: 2018Q2

REPORT INFORMATION
  Report Type: Other
  Country: US (occurrence: US)
  Receive Date: 20180611
  Receipt Date: 20180611
  Transmission Date: 20180720
  Serious: Yes (Hospitalization, Other)
  Sender: FDA-Public Use
  Company Number: US-MISSION PHARMACAL COMPANY-2049245

PATIENT
  Age: 54 Year
  Sex: Male

DRUGS (1)
  1. THIOLA [Suspect]
     Active Substance: TIOPRONIN
     Indication: NEPHROLITHIASIS
     Route: 048
     Dates: start: 20141022

REACTIONS (3)
  - Brain hypoxia [Unknown]
  - Brain injury [Unknown]
  - Myocardial infarction [Unknown]
